FAERS Safety Report 9912414 (Version 4)
Quarter: 2015Q4

REPORT INFORMATION
  Report Type: Report from Study
  Country: US (occurrence: US)
  Receive Date: 20140220
  Receipt Date: 20151112
  Transmission Date: 20160305
  Serious: Yes (Other)
  Sender: FDA-Public Use
  Company Number: US-ROCHE-1330434

PATIENT
  Sex: Female

DRUGS (14)
  1. AMLODIPINE BESYLATE. [Concomitant]
     Active Substance: AMLODIPINE BESYLATE
     Route: 047
  2. CARVEDILOL. [Concomitant]
     Active Substance: CARVEDILOL
     Route: 047
  3. FUROSEMIDE. [Concomitant]
     Active Substance: FUROSEMIDE
     Route: 047
  4. TETRAVISC [Concomitant]
     Active Substance: TETRACAINE HYDROCHLORIDE
  5. PREDNISOLONE. [Concomitant]
     Active Substance: PREDNISOLONE
     Route: 047
  6. HYDRALAZINE HYDROCHLORIDE. [Concomitant]
     Active Substance: HYDRALAZINE HYDROCHLORIDE
     Route: 047
  7. OFLOXACIN. [Concomitant]
     Active Substance: OFLOXACIN
     Route: 065
  8. SIMVASTIN [Concomitant]
     Active Substance: SIMVASTATIN
     Route: 047
  9. PROPARACAINE [Concomitant]
     Active Substance: PROPARACAINE
  10. LIDOCAINE. [Concomitant]
     Active Substance: LIDOCAINE
  11. LANTUS [Concomitant]
     Active Substance: INSULIN GLARGINE
     Route: 065
  12. LUCENTIS [Suspect]
     Active Substance: RANIBIZUMAB
     Indication: RETINAL OEDEMA
  13. LUCENTIS [Suspect]
     Active Substance: RANIBIZUMAB
     Indication: NEOVASCULAR AGE-RELATED MACULAR DEGENERATION
     Dosage: RIGHT AND LEFT EYE
     Route: 050
     Dates: start: 20110502
  14. AVASTIN [Suspect]
     Active Substance: BEVACIZUMAB
     Indication: PRODUCT USED FOR UNKNOWN INDICATION
     Route: 047
     Dates: start: 20111028

REACTIONS (7)
  - Diabetic retinal oedema [Unknown]
  - Aneurysm [Unknown]
  - Vision blurred [Unknown]
  - Retinopathy hypertensive [Unknown]
  - Vitreous haemorrhage [Unknown]
  - Cutis laxa [Unknown]
  - Optic atrophy [Unknown]
